FAERS Safety Report 5534422-2 (Version None)
Quarter: 2007Q4

REPORT INFORMATION
  Report Type: 
  Country: None (occurrence: None)
  Receive Date: 20071205
  Receipt Date: 20071123
  Transmission Date: 20080405
  Serious: Yes (Death)
  Sender: FDA-Public Use
  Company Number: CO-ROCHE-533273

PATIENT
  Sex: Female

DRUGS (3)
  1. XELODA [Suspect]
     Route: 048
     Dates: start: 20070912, end: 20071112
  2. HERCEPTIN [Concomitant]
     Route: 042
     Dates: start: 20070911, end: 20071023
  3. LEVOTHYROXINE/LIOTHYRONINE [Concomitant]
     Indication: HYPOTHYROIDISM
     Dosage: DRUG NAME REPORTED: EUTROID.
     Route: 048

REACTIONS (1)
  - HEPATIC FAILURE [None]
